FAERS Safety Report 6257708-5 (Version None)
Quarter: 2009Q3

REPORT INFORMATION
  Report Type: 
  Country: None (occurrence: None)
  Receive Date: 20090706
  Receipt Date: 20090703
  Transmission Date: 20100115
  Serious: Yes (Death)
  Sender: FDA-Public Use
  Company Number: DE-ROCHE-641531

PATIENT
  Age: 59 Year
  Sex: Female

DRUGS (1)
  1. CAPECITABINE [Suspect]
     Route: 065
     Dates: end: 20060721

REACTIONS (1)
  - BREAST CANCER METASTATIC [None]
